FAERS Safety Report 15449956 (Version 10)
Quarter: 2020Q3

REPORT INFORMATION
  Report Type: Spontaneous
  Country: GB (occurrence: GB)
  Receive Date: 20181001
  Receipt Date: 20200825
  Transmission Date: 20201102
  Serious: Yes (Life-Threatening, Hospitalization, Other)
  Sender: FDA-Public Use
  Company Number: GB-BRISTOL-MYERS SQUIBB COMPANY-BMS-2018-086169

PATIENT
  Age: 64 Year
  Sex: Male

DRUGS (5)
  1. METFORMIN HYDROCHLORIDE. [Suspect]
     Active Substance: METFORMIN HYDROCHLORIDE
     Indication: INTENTIONAL OVERDOSE
     Dosage: 42 G, UNK
     Route: 048
  2. RISPERIDONE. [Suspect]
     Active Substance: RISPERIDONE
     Indication: INTENTIONAL OVERDOSE
     Dosage: 88 MG, UNK
     Route: 048
  3. RANITIDINE. [Suspect]
     Active Substance: RANITIDINE
     Indication: INTENTIONAL OVERDOSE
     Dosage: 9 G, UNK
     Route: 048
  4. PRAVASTATIN SODIUM. [Suspect]
     Active Substance: PRAVASTATIN SODIUM
     Indication: INTENTIONAL OVERDOSE
     Dosage: 840 MG, UNK
     Route: 048
  5. NIMODIPINE. [Suspect]
     Active Substance: NIMODIPINE
     Indication: INTENTIONAL OVERDOSE
     Dosage: 840 MG, UNK
     Route: 048

REACTIONS (13)
  - Intensive care unit acquired weakness [Recovering/Resolving]
  - Hypotension [Recovering/Resolving]
  - Lactic acidosis [Unknown]
  - Cerebral ischaemia [Recovering/Resolving]
  - Nervous system disorder [Unknown]
  - Impaired work ability [Unknown]
  - Brain injury [Recovering/Resolving]
  - Renal failure [Recovering/Resolving]
  - Sinus bradycardia [Not Recovered/Not Resolved]
  - Cognitive disorder [Recovering/Resolving]
  - Intentional overdose [Recovering/Resolving]
  - Cardiogenic shock [Recovered/Resolved with Sequelae]
  - Cardiovascular disorder [Not Recovered/Not Resolved]
